FAERS Safety Report 5796966-8 (Version None)
Quarter: 2008Q2

REPORT INFORMATION
  Report Type: 
  Country: None (occurrence: None)
  Receive Date: 20080627
  Receipt Date: 20080611
  Transmission Date: 20081010
  Serious: Yes (Hospitalization)
  Sender: FDA-Public Use
  Company Number: 2008EU001165

PATIENT
  Age: 51 Year
  Sex: Female

DRUGS (8)
  1. PROGRAF [Suspect]
     Indication: LUNG TRANSPLANT
     Dosage: 4 MG UNK UNK
     Dates: start: 20030101, end: 20080110
  2. DI-ANTALVIC (PARACETAMOL) [Suspect]
     Dosage: UNK, UNKNOWN/D, ORAL
     Route: 048
     Dates: start: 20080109, end: 20080110
  3. CELLCEPT [Concomitant]
  4. CORTANYCYL (PREDNISONE) [Concomitant]
  5. BACTRIM [Concomitant]
  6. OROCAL [Concomitant]
  7. ACTONEL [Concomitant]
  8. POTASSIUM CHLORIDE [Concomitant]

REACTIONS (7)
  - APHTHOUS STOMATITIS [None]
  - ATROPHY [None]
  - DIARRHOEA [None]
  - GASTROINTESTINAL DISORDER [None]
  - IMMUNOSUPPRESSANT DRUG LEVEL INCREASED [None]
  - LUNG DISORDER [None]
  - PULMONARY EMBOLISM [None]
